FAERS Safety Report 6940300-4 (Version None)
Quarter: 2010Q3

REPORT INFORMATION
  Report Type: 
  Country: None (occurrence: None)
  Receive Date: 20100825
  Receipt Date: 20100817
  Transmission Date: 20110219
  Serious: Yes (Hospitalization)
  Sender: FDA-Public Use
  Company Number: FR-SANOFI-AVENTIS-2010SA030705

PATIENT
  Age: 79 Year
  Sex: Female

DRUGS (7)
  1. STILNOX [Suspect]
     Indication: INSOMNIA
     Route: 048
     Dates: start: 20051018, end: 20090720
  2. PLAVIX [Suspect]
     Route: 048
     Dates: start: 20040917, end: 20090720
  3. SEROPLEX [Suspect]
     Indication: DEPRESSION
     Route: 048
     Dates: start: 20090519, end: 20090520
  4. LERCAN [Suspect]
     Route: 048
     Dates: start: 20090218, end: 20090720
  5. TANAKAN [Suspect]
     Route: 048
     Dates: start: 20080207, end: 20090720
  6. EZETROL [Suspect]
     Route: 048
     Dates: start: 20050718, end: 20090720
  7. SOTALOL HCL [Concomitant]
     Route: 048
     Dates: start: 20040917

REACTIONS (13)
  - ABDOMINAL PAIN [None]
  - ALANINE AMINOTRANSFERASE INCREASED [None]
  - ASPARTATE AMINOTRANSFERASE INCREASED [None]
  - C-REACTIVE PROTEIN INCREASED [None]
  - ENTERITIS [None]
  - GAMMA-GLUTAMYLTRANSFERASE INCREASED [None]
  - GASTRIC ULCER [None]
  - GASTROOESOPHAGEAL REFLUX DISEASE [None]
  - HEPATITIS ACUTE [None]
  - HIATUS HERNIA [None]
  - MELAENA [None]
  - THROAT IRRITATION [None]
  - VOMITING [None]
